FAERS Safety Report 16740089 (Version 10)
Quarter: 2020Q4

REPORT INFORMATION
  Report Type: Report from Study
  Country: US (occurrence: US)
  Receive Date: 20190826
  Receipt Date: 20201101
  Transmission Date: 20210113
  Serious: Yes (Death, Life-Threatening, Other)
  Sender: FDA-Public Use
  Company Number: PHEH2019US034988

PATIENT
  Sex: Male
  Weight: 74.83 kg

DRUGS (3)
  1. KYMRIAH [Suspect]
     Active Substance: TISAGENLECLEUCEL
     Indication: B-CELL TYPE ACUTE LEUKAEMIA
     Dosage: 13 ML, ONCE/SINGLE
     Route: 041
     Dates: start: 20190115
  2. CYCLOPHOSPHAMIDE. [Concomitant]
     Active Substance: CYCLOPHOSPHAMIDE
     Indication: CHEMOTHERAPY
     Route: 065
  3. FLUDARABINE [Concomitant]
     Active Substance: FLUDARABINE PHOSPHATE
     Indication: CHEMOTHERAPY
     Route: 065

REACTIONS (25)
  - Infection [Unknown]
  - Hypogammaglobulinaemia [Recovered/Resolved]
  - Bacteroides infection [Unknown]
  - Neurotoxicity [Recovered/Resolved]
  - Clostridial infection [Unknown]
  - Sinusitis [Unknown]
  - Cytokine release syndrome [Recovered/Resolved]
  - Pyrexia [Unknown]
  - Cellulitis [Unknown]
  - Rhinovirus infection [Unknown]
  - Viral upper respiratory tract infection [Unknown]
  - Streptococcal infection [Unknown]
  - Aspergillus infection [Unknown]
  - Treatment failure [Unknown]
  - Depressed level of consciousness [Unknown]
  - White blood cell count increased [Unknown]
  - Adenovirus infection [Unknown]
  - Cytopenia [Unknown]
  - Hypoxia [Unknown]
  - Tremor [Unknown]
  - B-cell type acute leukaemia [Fatal]
  - Malignant neoplasm progression [Fatal]
  - Hallucination [Unknown]
  - Enterococcal infection [Unknown]
  - Gastrointestinal infection [Unknown]
